FAERS Safety Report 7206747-6 (Version None)
Quarter: 2011Q1

REPORT INFORMATION
  Report Type: 
  Country: None (occurrence: None)
  Receive Date: 20110103
  Receipt Date: 20101227
  Transmission Date: 20110831
  Serious: Yes (Other)
  Sender: FDA-Public Use
  Company Number: IT-SANOFI-AVENTIS-2010SA077773

PATIENT
  Age: 69 Year
  Sex: Male

DRUGS (8)
  1. DILATREND [Suspect]
     Route: 048
     Dates: start: 20101001, end: 20101216
  2. ZAROXOLYN [Suspect]
     Route: 048
     Dates: start: 20101001, end: 20101216
  3. LASIX [Suspect]
     Dosage: DOSE:4 UNIT(S)
     Route: 048
     Dates: start: 20101001
  4. IPERTEN [Suspect]
     Dosage: DOSE:1 UNIT(S)
     Route: 048
     Dates: start: 20101101, end: 20101216
  5. APIDRA [Concomitant]
     Indication: DIABETES MELLITUS
     Route: 065
  6. LANTUS [Concomitant]
     Indication: DIABETES MELLITUS
     Route: 065
  7. KARVEA [Suspect]
     Dosage: DOSE:1 UNIT(S)
     Route: 048
     Dates: start: 20101101, end: 20101216
  8. TORVAST [Concomitant]
     Dosage: DOSE:1 UNIT(S)
     Route: 048
     Dates: start: 20101001, end: 20101216

REACTIONS (2)
  - SYNCOPE [None]
  - HYPOTENSION [None]
